FAERS Safety Report 25730784 (Version 1)
Quarter: 2025Q3

REPORT INFORMATION
  Report Type: Report from Study
  Country: GB (occurrence: GB)
  Receive Date: 20250827
  Receipt Date: 20250827
  Transmission Date: 20251021
  Serious: Yes (Other)
  Sender: CELLTRION
  Company Number: GB-CELLTRION INC.-2025GB029129

PATIENT

DRUGS (2)
  1. INFLIXIMAB-DYYB [Suspect]
     Active Substance: INFLIXIMAB-DYYB
     Indication: Crohn^s disease
     Dosage: 120 MG, EVERY 2 WEEKS
     Route: 058
     Dates: start: 202506
  2. INFLIXIMAB-DYYB [Suspect]
     Active Substance: INFLIXIMAB-DYYB
     Dosage: 120MG/1ML SOLUTION FOR INJECTION PRE-FILLED PENS - INJECT ONE PRE-FILLED PEN EVERY TWO WEEKS
     Route: 058
     Dates: start: 202507

REACTIONS (6)
  - Decubitus ulcer [Unknown]
  - Impaired quality of life [Unknown]
  - Poor personal hygiene [Unknown]
  - Lethargy [Unknown]
  - Pollakiuria [Unknown]
  - Hypoaesthesia [Unknown]
